FAERS Safety Report 4737820-X (Version None)
Quarter: 2005Q3

REPORT INFORMATION
  Report Type: 
  Country: None (occurrence: None)
  Receive Date: 20050805
  Receipt Date: 20050718
  Transmission Date: 20060218
  Serious: No
  Sender: FDA-Public Use
  Company Number: B0389271A

PATIENT
  Sex: Male

DRUGS (2)
  1. LANOXIN [Suspect]
     Indication: SUPRAVENTRICULAR TACHYCARDIA
  2. ADENOSINE [Concomitant]

REACTIONS (4)
  - BRADYARRHYTHMIA [None]
  - GASTROINTESTINAL NECROSIS [None]
  - NECROTISING ENTEROCOLITIS NEONATAL [None]
  - THERAPEUTIC AGENT TOXICITY [None]
